FAERS Safety Report 5633105-8 (Version None)
Quarter: 2008Q1

REPORT INFORMATION
  Report Type: 
  Country: None (occurrence: None)
  Receive Date: 20080221
  Receipt Date: 20080211
  Transmission Date: 20080703
  Serious: Yes (Other)
  Sender: FDA-Public Use
  Company Number: IL-AVENTIS-200811018GDDC

PATIENT
  Age: 90 Year
  Sex: Female

DRUGS (4)
  1. METRONIDAZOLE HCL [Suspect]
     Route: 042
  2. LEVODOPA [Concomitant]
     Dosage: DOSE: UNK
  3. CALCIUM [Concomitant]
     Dosage: DOSE: UNK
  4. CEFTRIAXONE [Concomitant]
     Route: 042

REACTIONS (1)
  - ELECTROCARDIOGRAM QT PROLONGED [None]
